FAERS Safety Report 23870332 (Version 1)
Quarter: 2024Q2

REPORT INFORMATION
  Report Type: Other
  Country: US (occurrence: US)
  Receive Date: 20240517
  Receipt Date: 20240517
  Transmission Date: 20240716
  Serious: No
  Sender: FDA-Public Use
  Company Number: US-TRAVERE-2024TVT00451

PATIENT
  Sex: Female

DRUGS (1)
  1. FILSPARI [Suspect]
     Active Substance: SPARSENTAN
     Indication: IgA nephropathy
     Dosage: PATIENT SPOUSE REPORTING THAT PATIENT STOPPED FILSPARI AFTER TAKING FOR 1 MONTH. STATES SHE COULDN^T
     Route: 048

REACTIONS (5)
  - Feeling abnormal [Unknown]
  - Chills [Unknown]
  - Headache [Unknown]
  - Fatigue [Unknown]
  - Blood potassium increased [Unknown]
